FAERS Safety Report 11361288 (Version 1)
Quarter: 2015Q3

REPORT INFORMATION
  Report Type: Spontaneous
  Country: US (occurrence: US)
  Receive Date: 20150810
  Receipt Date: 20150810
  Transmission Date: 20151125
  Serious: No
  Sender: FDA-Public Use
  Company Number: US-ELI_LILLY_AND_COMPANY-US201508000587

PATIENT
  Sex: Male

DRUGS (4)
  1. AXIRON [Suspect]
     Active Substance: TESTOSTERONE
     Dosage: 30 MG, UNKNOWN
     Route: 065
  2. CIALIS [Suspect]
     Active Substance: TADALAFIL
     Indication: PRODUCT USED FOR UNKNOWN INDICATION
     Dosage: 5 MG, QD
     Route: 065
     Dates: start: 2013
  3. AXIRON [Suspect]
     Active Substance: TESTOSTERONE
     Indication: BLOOD TESTOSTERONE DECREASED
     Dosage: 60 MG, UNKNOWN
     Route: 065
     Dates: start: 201506
  4. AXIRON [Suspect]
     Active Substance: TESTOSTERONE
     Dosage: 45 MG, UNKNOWN
     Route: 065
     Dates: start: 201507

REACTIONS (9)
  - Dizziness [Unknown]
  - Nausea [Unknown]
  - Erectile dysfunction [Unknown]
  - Ocular hyperaemia [Unknown]
  - Drug ineffective [Unknown]
  - Hypertension [Unknown]
  - Hair growth abnormal [Unknown]
  - Incorrect dose administered [Unknown]
  - Gynaecomastia [Unknown]
